FAERS Safety Report 16157965 (Version 1)
Quarter: 2019Q2

REPORT INFORMATION
  Report Type: Spontaneous
  Country: BR (occurrence: BR)
  Receive Date: 20190404
  Receipt Date: 20190404
  Transmission Date: 20190711
  Serious: Yes (Death)
  Sender: FDA-Public Use
  Company Number: BR-BAXTER-2019BAX006040

PATIENT

DRUGS (2)
  1. FLOSEAL [Suspect]
     Active Substance: THROMBIN
     Indication: TISSUE SEALING
     Route: 065
     Dates: start: 20190305
  2. TISSEEL DUO [Suspect]
     Active Substance: APROTININ\CALCIUM CHLORIDE\FIBRINOGEN HUMAN\FACTOR XIII CONCENTRATE (HUMAN)\THROMBIN
     Indication: TISSUE SEALING
     Route: 065
     Dates: start: 20190305

REACTIONS (2)
  - Shock [Fatal]
  - Inflammation [Fatal]

NARRATIVE: CASE EVENT DATE: 20190306
